FAERS Safety Report 8993030 (Version 1)
Quarter: 2013Q1

REPORT INFORMATION
  Report Type: Spontaneous
  Country: US (occurrence: US)
  Receive Date: 20130102
  Receipt Date: 20130102
  Transmission Date: 20140127
  Serious: Yes (Other)
  Sender: FDA-Public Use
  Company Number: US-JNJFOC-20121211609

PATIENT
  Sex: 0

DRUGS (2)
  1. MOTRIN IB [Suspect]
     Route: 048
  2. MOTRIN IB [Suspect]
     Indication: BACK PAIN
     Dosage: 200MG/CAPLET, THREE CAPLETS IN A DAY
     Route: 048

REACTIONS (1)
  - Blood urine present [Unknown]
